FAERS Safety Report 24156449 (Version 1)
Quarter: 2024Q3

REPORT INFORMATION
  Report Type: Spontaneous
  Country: IL (occurrence: IL)
  Receive Date: 20240731
  Receipt Date: 20240731
  Transmission Date: 20241016
  Serious: Yes (Other)
  Sender: PFIZER
  Company Number: IL-PFIZER INC-PV202400099196

PATIENT
  Sex: Female

DRUGS (1)
  1. LORLATINIB [Suspect]
     Active Substance: LORLATINIB

REACTIONS (4)
  - Suicide attempt [Unknown]
  - Suicidal ideation [Unknown]
  - Anxiety [Unknown]
  - Depression [Unknown]
